FAERS Safety Report 9803937 (Version 1)
Quarter: 2014Q1

REPORT INFORMATION
  Report Type: Spontaneous
  Country: FR (occurrence: FR)
  Receive Date: 20140108
  Receipt Date: 20140108
  Transmission Date: 20141002
  Serious: Yes (Hospitalization)
  Sender: FDA-Public Use
  Company Number: FR-PFIZER INC-2014001510

PATIENT
  Age: 75 Year
  Sex: Female

DRUGS (4)
  1. AMLOR [Suspect]
     Indication: HYPERTENSION
     Dosage: 5 MG, 1X/DAY
     Route: 048
     Dates: start: 201310, end: 201312
  2. METOPROLOL FUMARATE [Suspect]
     Indication: HYPERTENSION
     Dosage: 50 MG, 1X/DAY
     Route: 048
     Dates: start: 201310, end: 201312
  3. INEXIUM /01479302/ [Concomitant]
  4. DAFALGAN [Concomitant]
     Dosage: 1 G, UNK

REACTIONS (1)
  - Fall [Recovered/Resolved]
